FAERS Safety Report 5546527-0 (Version None)
Quarter: 2007Q4

REPORT INFORMATION
  Report Type: 
  Country: None (occurrence: None)
  Receive Date: 20071211
  Receipt Date: 20070211
  Transmission Date: 20080405
  Serious: No
  Sender: FDA-Public Use
  Company Number: US-AMGEN-KDL210882

PATIENT
  Sex: Female

DRUGS (2)
  1. ENBREL [Suspect]
     Indication: RHEUMATOID ARTHRITIS
     Route: 058
     Dates: start: 20061029
  2. ARAVA [Concomitant]
     Dates: start: 20061029

REACTIONS (4)
  - COUGH [None]
  - INCREASED UPPER AIRWAY SECRETION [None]
  - MALAISE [None]
  - RHEUMATOID ARTHRITIS [None]
